FAERS Safety Report 16864312 (Version 2)
Quarter: 2019Q4

REPORT INFORMATION
  Report Type: Spontaneous
  Country: TR (occurrence: TR)
  Receive Date: 20190927
  Receipt Date: 20191007
  Transmission Date: 20200122
  Serious: Yes (Other)
  Sender: FDA-Public Use
  Company Number: TR-ABBVIE-19K-161-2939941-00

PATIENT
  Sex: Male

DRUGS (1)
  1. SEVORANE [Suspect]
     Active Substance: SEVOFLURANE
     Indication: GENERAL ANAESTHESIA
     Route: 055
     Dates: start: 20190826, end: 20190826

REACTIONS (2)
  - Carbon dioxide increased [Recovered/Resolved]
  - Cardiopulmonary bypass [Unknown]

NARRATIVE: CASE EVENT DATE: 2019
